FAERS Safety Report 18351470 (Version 4)
Quarter: 2025Q3

REPORT INFORMATION
  Report Type: Report from Study
  Country: EU (occurrence: EU)
  Receive Date: 20201007
  Receipt Date: 20250721
  Transmission Date: 20251021
  Serious: Yes (Death, Life-Threatening, Other)
  Sender: AUROBINDO
  Company Number: EU-CHEPLA-C20202827_09

PATIENT

DRUGS (4)
  1. VALGANCICLOVIR [Suspect]
     Active Substance: VALGANCICLOVIR
     Indication: Cytomegalovirus infection
     Dosage: 900 MILLIGRAM, TWO TIMES A DAY
     Route: 048
  2. FOSCARNET [Suspect]
     Active Substance: FOSCARNET
     Indication: Cytomegalovirus infection
     Dosage: 60 MILLIGRAM/KILOGRAM, TWO TIMES A DAY
     Route: 042
  3. GANCICLOVIR [Suspect]
     Active Substance: GANCICLOVIR
     Indication: Cytomegalovirus infection
     Dosage: 5 MILLIGRAM/KILOGRAM, TWO TIMES A DAY, INDUCTION
     Route: 042
  4. GANCICLOVIR [Suspect]
     Active Substance: GANCICLOVIR
     Dosage: 6 MILLIGRAM/KILOGRAM, ONCE A DAY, MAINTANENCE
     Route: 042

REACTIONS (6)
  - Colitis [Fatal]
  - Acute graft versus host disease [Fatal]
  - Cytomegalovirus infection reactivation [Fatal]
  - Neutropenia [Fatal]
  - Viral mutation identified [Fatal]
  - Rash [Fatal]
